FAERS Safety Report 6260308-4 (Version None)
Quarter: 2009Q3

REPORT INFORMATION
  Report Type: 
  Country: None (occurrence: None)
  Receive Date: 20090706
  Receipt Date: 20090624
  Transmission Date: 20100115
  Serious: Yes (Hospitalization)
  Sender: FDA-Public Use
  Company Number: SPV1-2008-01672

PATIENT
  Age: 53 Year
  Sex: Female

DRUGS (2)
  1. MIDODRINE HYDROCHLORIDE [Suspect]
     Indication: ORTHOSTATIC HYPOTENSION
     Dosage: 2.5 MG, 3X/DAY:TID
  2. PERPHENAZINE [Suspect]
     Indication: MAJOR DEPRESSION
     Dosage: 4 MG DAILY

REACTIONS (3)
  - DRUG INTERACTION [None]
  - DYSTONIA [None]
  - TORTICOLLIS [None]
